FAERS Safety Report 22018313 (Version 3)
Quarter: 2023Q2

REPORT INFORMATION
  Report Type: Spontaneous
  Country: US (occurrence: US)
  Receive Date: 20230221
  Receipt Date: 20230614
  Transmission Date: 20230721
  Serious: No
  Sender: FDA-Public Use
  Company Number: US-AVEO ONCOLOGY-2023-AVEO-US000061

PATIENT

DRUGS (19)
  1. FOTIVDA [Suspect]
     Active Substance: TIVOZANIB HYDROCHLORIDE
     Indication: Renal cell carcinoma
     Dosage: 1.34 MG, DAILY FOR 21 DAYS WITH 7 DAYS OFF (28-DAY CYCLE)
     Route: 048
     Dates: start: 20230114
  2. MIRALAX [Concomitant]
     Active Substance: POLYETHYLENE GLYCOL 3350
     Dosage: 17 G, DAILY
     Route: 048
  3. METFORMIN [Concomitant]
     Active Substance: METFORMIN HYDROCHLORIDE
     Dosage: 500 MG, BID
     Route: 048
  4. POTASSIUM CHLORIDE [Concomitant]
     Active Substance: POTASSIUM CHLORIDE
     Dosage: 20 MEQ, DAILY
     Route: 048
     Dates: start: 20230209
  5. Vitamin C with rose hips [Concomitant]
     Dosage: 2000 MG, BID
     Route: 048
  6. LIOTHYRONINE [Concomitant]
     Active Substance: LIOTHYRONINE
     Dosage: 5 NG, 2-4 TABLETS
     Route: 048
     Dates: start: 20221205
  7. ESOMEPRAZOLE MAGNESIUM [Concomitant]
     Active Substance: ESOMEPRAZOLE MAGNESIUM
     Dosage: 40 MG, DAILY
     Route: 048
     Dates: start: 20221006
  8. TRAMADOL [Concomitant]
     Active Substance: TRAMADOL
     Dosage: 50 MG, Q6HR
     Route: 048
     Dates: start: 20220907
  9. LEVOTHYROXINE [Concomitant]
     Active Substance: LEVOTHYROXINE
     Dosage: 75 UG, DAILY
     Route: 048
     Dates: start: 20220812
  10. LABETALOL [Concomitant]
     Active Substance: LABETALOL\LABETALOL HYDROCHLORIDE
     Dosage: 100 MG, BID
     Route: 048
     Dates: start: 20220812
  11. HYDROCORTISONE [Concomitant]
     Active Substance: HYDROCORTISONE
     Dosage: 20 MG, BID
     Route: 048
     Dates: start: 20220812
  12. TADALAFIL [Concomitant]
     Active Substance: TADALAFIL
     Dosage: 5 MG
     Route: 048
     Dates: start: 20220812
  13. PERCOCET [Concomitant]
     Active Substance: ACETAMINOPHEN\OXYCODONE HYDROCHLORIDE
     Dosage: 5-325 MG, Q4HR
     Dates: start: 20220803
  14. ONDANSETRON [Concomitant]
     Active Substance: ONDANSETRON
     Dosage: 8 MG, TID PRN
     Route: 048
     Dates: start: 20220713
  15. ZINC [Concomitant]
     Active Substance: ZINC
     Dosage: 50 MG, DAILY
     Route: 048
     Dates: start: 20220623
  16. LORAZEPAM [Concomitant]
     Active Substance: LORAZEPAM
     Dosage: 2 MG AS DIRECTED
     Route: 048
     Dates: start: 20220411
  17. MAGNESIUM CHLORIDE [Concomitant]
     Active Substance: MAGNESIUM CHLORIDE
     Dosage: 143 MG, DAILY
     Route: 048
     Dates: start: 20220302
  18. TESSALON [Concomitant]
     Active Substance: BENZONATATE
     Dosage: 100 MG, TID PRN
     Route: 048
     Dates: start: 20210916
  19. Robitussin ER [Concomitant]
     Dosage: 1 TEASPOON, QID
     Route: 048
     Dates: start: 20210916

REACTIONS (3)
  - Blood pressure increased [Unknown]
  - Fatigue [Unknown]
  - Therapeutic response unexpected [Unknown]
